FAERS Safety Report 7585837-2 (Version None)
Quarter: 2011Q2

REPORT INFORMATION
  Report Type: 
  Country: None (occurrence: None)
  Receive Date: 20110603
  Receipt Date: 20110421
  Transmission Date: 20111010
  Serious: No
  Sender: FDA-Public Use
  Company Number: 201104081

PATIENT
  Age: 53 Year
  Sex: Male

DRUGS (2)
  1. ANESTETICS, LOCAL (ANESTETICS, LOCAL) [Suspect]
     Dates: start: 20110421, end: 20110421
  2. XIAFLEX [Suspect]
     Indication: DUPUYTREN'S CONTRACTURE
     Dosage: 0.58 MG, 1 IN 1 D, INTRALESIONAL
     Route: 026
     Dates: start: 20110420, end: 20110420

REACTIONS (3)
  - SKIN SENSITISATION [None]
  - OEDEMA PERIPHERAL [None]
  - CONTUSION [None]
